FAERS Safety Report 6517855-7 (Version None)
Quarter: 2009Q4

REPORT INFORMATION
  Report Type: 
  Country: None (occurrence: None)
  Receive Date: 20091224
  Receipt Date: 20091223
  Transmission Date: 20100525
  Serious: Yes (Death)
  Sender: FDA-Public Use
  Company Number: PHEH2009US13528

PATIENT
  Sex: Female

DRUGS (1)
  1. EXJADE [Suspect]
     Indication: IRON OVERLOAD
     Dosage: 1000 MG DAILY
     Route: 048

REACTIONS (4)
  - CARDIAC TAMPONADE [None]
  - MYELODYSPLASTIC SYNDROME [None]
  - PERICARDIAL EFFUSION [None]
  - THROMBOCYTOPENIA [None]
